FAERS Safety Report 7498466-6 (Version None)
Quarter: 2011Q2

REPORT INFORMATION
  Report Type: 
  Country: None (occurrence: None)
  Receive Date: 20110516
  Receipt Date: 20110504
  Transmission Date: 20111010
  Serious: Yes (Life-Threatening, Other)
  Sender: FDA-Public Use
  Company Number: DSA_45535_2011

PATIENT
  Sex: Female
  Weight: 82 kg

DRUGS (11)
  1. METFORMIN HCL [Suspect]
     Indication: PRODUCT USED FOR UNKNOWN INDICATION
     Dosage: (500 MG DAILY ORAL)
     Route: 048
     Dates: end: 20100803
  2. CIPROFLOXACIN [Suspect]
     Indication: PRODUCT USED FOR UNKNOWN INDICATION
     Dosage: (1000 MG DAILY ORAL)
     Dates: start: 20100722, end: 20100722
  3. ASPIRIN AND DIPYRIDAMOLE [Concomitant]
  4. CRESTOR [Concomitant]
  5. HEPARIN SODIUM [Concomitant]
  6. METOCLOPRAMIDE HYDROCHLORIDE [Concomitant]
  7. ONDANSETRON HYDROCHLORIDE [Concomitant]
  8. CARDIZEM CD [Suspect]
     Indication: PRODUCT USED FOR UNKNOWN INDICATION
     Dosage: (180 MG DAILY ORAL)
     Route: 048
     Dates: end: 20100804
  9. TIMENTIN [Suspect]
     Indication: PRODUCT USED FOR UNKNOWN INDICATION
     Dosage: (12.4 GRAM DAILY INTRAVENOUS (NOT OTHERWISE SPECIFIED)
     Dates: start: 20100716, end: 20100722
  10. SERTRALINE HYDROCHLORIDE [Concomitant]
  11. TRANDOLAPRIL [Suspect]
     Indication: PRODUCT USED FOR UNKNOWN INDICATION
     Dosage: (4 MG DAILY ORAL)
     Dates: end: 20100803

REACTIONS (4)
  - RENAL FAILURE ACUTE [None]
  - ACUTE PULMONARY OEDEMA [None]
  - HAEMODIALYSIS [None]
  - HYPERKALAEMIA [None]
